FAERS Safety Report 25846649 (Version 1)
Quarter: 2025Q3

REPORT INFORMATION
  Report Type: Spontaneous
  Country: US (occurrence: US)
  Receive Date: 20250925
  Receipt Date: 20250925
  Transmission Date: 20251020
  Serious: Yes (Death, Hospitalization, Other)
  Sender: AMGEN
  Company Number: US-AMGEN-USASP2025185848

PATIENT

DRUGS (4)
  1. PREDNISONE [Suspect]
     Active Substance: PREDNISONE
     Indication: Psoriasis
     Route: 065
  2. RITUXIMAB [Suspect]
     Active Substance: RITUXIMAB
     Indication: Psoriasis
     Route: 065
  3. ETANERCEPT [Suspect]
     Active Substance: ETANERCEPT
     Indication: Psoriasis
     Route: 065
  4. INFLIXIMAB [Suspect]
     Active Substance: INFLIXIMAB
     Indication: Psoriasis
     Route: 065

REACTIONS (25)
  - Death [Fatal]
  - Unevaluable event [Unknown]
  - Bronchiectasis [Unknown]
  - Pulmonary arteriopathy [Unknown]
  - Oesophageal dilatation [Unknown]
  - Interstitial lung disease [Unknown]
  - Anti-neutrophil cytoplasmic antibody positive vasculitis [Unknown]
  - Connective tissue disease-associated interstitial lung disease [Unknown]
  - Radiation pneumonitis [Unknown]
  - Idiopathic interstitial pneumonia [Unknown]
  - Lung disorder [Unknown]
  - Cough [Unknown]
  - Dyspnoea [Unknown]
  - Wheezing [Unknown]
  - Crepitations [Unknown]
  - Lung opacity [Unknown]
  - Lung consolidation [Unknown]
  - Lung cyst [Unknown]
  - Pulmonary mass [Unknown]
  - Emphysema [Unknown]
  - Bronchial wall thickening [Unknown]
  - Serositis [Unknown]
  - Antinuclear antibody positive [Unknown]
  - Rheumatoid factor positive [Unknown]
  - Off label use [Unknown]
